FAERS Safety Report 8925910 (Version 1)
Quarter: 2012Q4

REPORT INFORMATION
  Report Type: 
  Country: JP (occurrence: JP)
  Receive Date: 20121126
  Receipt Date: 20121126
  Transmission Date: 20130627
  Serious: Yes (Death, Hospitalization)
  Sender: FDA-Public Use
  Company Number: JP-ROCHE-1081405

PATIENT
  Age: 58 Year
  Sex: Female
  Weight: 56 kg

DRUGS (16)
  1. AVASTIN [Suspect]
     Indication: RECTAL CANCER METASTATIC
     Route: 041
     Dates: start: 20100427, end: 20100713
  2. AVASTIN [Suspect]
     Indication: RECTAL CANCER METASTATIC
     Route: 041
     Dates: start: 20100803, end: 20101005
  3. AVASTIN [Suspect]
     Indication: RECTAL CANCER METASTATIC
     Route: 041
     Dates: start: 20101102, end: 20110111
  4. AVASTIN [Suspect]
     Indication: RECTAL CANCER METASTATIC
     Route: 041
     Dates: start: 20110125, end: 20110621
  5. AVASTIN [Suspect]
     Indication: RECTAL CANCER METASTATIC
     Route: 041
     Dates: start: 20120131, end: 20120131
  6. AVASTIN [Suspect]
     Indication: RECTAL CANCER METASTATIC
     Route: 041
     Dates: start: 20120327, end: 20120515
  7. IRINOTECAN HYDROCHLORIDE TRIHYDRATE [Suspect]
     Indication: RECTAL CANCER METASTATIC
     Route: 041
     Dates: start: 20120131, end: 20120131
  8. IRINOTECAN HYDROCHLORIDE [Suspect]
     Indication: RECTAL CANCER METASTATIC
     Route: 041
     Dates: start: 20120327, end: 20120515
  9. ELPLAT [Concomitant]
     Indication: RECTAL CANCER METASTATIC
     Route: 041
     Dates: start: 20100427, end: 20100601
  10. ELPLAT [Concomitant]
     Indication: RECTAL CANCER METASTATIC
     Route: 041
     Dates: start: 20100629, end: 20100824
  11. ELPLAT [Concomitant]
     Indication: RECTAL CANCER METASTATIC
     Route: 041
     Dates: start: 20100914, end: 20110621
  12. 5-FU [Concomitant]
     Indication: RECTAL CANCER METASTATIC
     Route: 040
     Dates: start: 20100427, end: 20100601
  13. 5-FU [Concomitant]
     Indication: RECTAL CANCER METASTATIC
     Route: 041
     Dates: start: 20100427, end: 20100601
  14. 5-FU [Concomitant]
     Indication: RECTAL CANCER METASTATIC
     Route: 040
     Dates: start: 20100629, end: 20100824
  15. 5-FU [Concomitant]
     Indication: RECTAL CANCER METASTATIC
     Route: 041
     Dates: start: 20100629, end: 20110621
  16. LEVOFOLINATE [Concomitant]
     Indication: RECTAL CANCER METASTATIC
     Route: 041
     Dates: start: 20100427, end: 20100621

REACTIONS (9)
  - Febrile neutropenia [Recovered/Resolved]
  - Rectal perforation [Fatal]
  - Peritonitis [Fatal]
  - Rectal cancer metastatic [Fatal]
  - Red blood cell count decreased [None]
  - Metastases to lung [None]
  - Malignant neoplasm progression [None]
  - General physical health deterioration [None]
  - Platelet count decreased [None]
